FAERS Safety Report 8976499 (Version 1)
Quarter: 2012Q4

REPORT INFORMATION
  Report Type: Report from Study
  Country: CA (occurrence: CA)
  Receive Date: 20121220
  Receipt Date: 20121220
  Transmission Date: 20130627
  Serious: Yes (Hospitalization, Other)
  Sender: FDA-Public Use
  Company Number: CA-ROCHE-1166810

PATIENT
  Sex: Female
  Weight: 59 kg

DRUGS (2)
  1. OMALIZUMAB [Suspect]
     Indication: ASTHMA
     Route: 058
     Dates: start: 20070124
  2. FLUVAC [Concomitant]
     Route: 065
     Dates: start: 20091114

REACTIONS (19)
  - Bronchitis [Recovered/Resolved]
  - Emphysema [Not Recovered/Not Resolved]
  - Dyspnoea [Unknown]
  - Wheezing [Unknown]
  - Breath sounds abnormal [Unknown]
  - Malaise [Unknown]
  - Sinusitis [Unknown]
  - Productive cough [Unknown]
  - Secretion discharge [Unknown]
  - Back pain [Unknown]
  - Body temperature increased [Unknown]
  - Hypotonia [Unknown]
  - Asthenia [Unknown]
  - Local reaction [Recovered/Resolved]
  - Pulmonary congestion [Unknown]
  - Nasal congestion [Unknown]
  - Musculoskeletal discomfort [Unknown]
  - Influenza like illness [Unknown]
  - Cough [Unknown]
